FAERS Safety Report 21447392 (Version 15)
Quarter: 2025Q2

REPORT INFORMATION
  Report Type: Spontaneous
  Country: US (occurrence: None)
  Receive Date: 20221012
  Receipt Date: 20250602
  Transmission Date: 20250716
  Serious: No
  Sender: INCYTE
  Company Number: US-INCYTE CORPORATION-2022IN009571

PATIENT
  Age: 70 Year

DRUGS (13)
  1. JAKAFI [Suspect]
     Active Substance: RUXOLITINIB
     Indication: Polycythaemia vera
     Dosage: 15 MILLIGRAM, BID
  2. JAKAFI [Suspect]
     Active Substance: RUXOLITINIB
     Dosage: 15 MILLIGRAM, BID
  3. JAKAFI [Suspect]
     Active Substance: RUXOLITINIB
     Dosage: 15 MILLIGRAM, BID
  4. JAKAFI [Suspect]
     Active Substance: RUXOLITINIB
     Dosage: 15 MILLIGRAM, BID
     Route: 065
  5. JAKAFI [Suspect]
     Active Substance: RUXOLITINIB
     Dosage: 15 MILLIGRAM, QD
  6. JAKAFI [Suspect]
     Active Substance: RUXOLITINIB
     Dosage: 10 MILLIGRAM, QD
  7. JAKAFI [Suspect]
     Active Substance: RUXOLITINIB
     Dosage: 10 MILLIGRAM, BID
  8. JAKAFI [Suspect]
     Active Substance: RUXOLITINIB
     Dosage: 15 MILLIGRAM, BID
  9. JAKAFI [Suspect]
     Active Substance: RUXOLITINIB
     Dosage: 10 MILLIGRAM, BID
  10. JAKAFI [Suspect]
     Active Substance: RUXOLITINIB
     Dosage: 15 MILLIGRAM, BID
  11. JAKAFI [Suspect]
     Active Substance: RUXOLITINIB
     Route: 065
  12. JAKAFI [Suspect]
     Active Substance: RUXOLITINIB
     Dosage: 15 MILLIGRAM, BID
  13. JAKAFI [Suspect]
     Active Substance: RUXOLITINIB

REACTIONS (30)
  - Anxiety [Unknown]
  - Alopecia [Unknown]
  - Stress [Unknown]
  - Crying [Unknown]
  - Depressed mood [Unknown]
  - Abdominal pain upper [Recovering/Resolving]
  - Night sweats [Recovering/Resolving]
  - Increased appetite [Unknown]
  - Abdominal distension [Unknown]
  - Hot flush [Unknown]
  - Cough [Unknown]
  - Paranasal sinus discomfort [Unknown]
  - Back pain [Unknown]
  - Renal disorder [Unknown]
  - Fatigue [Unknown]
  - Erythema [Unknown]
  - Product availability issue [Unknown]
  - Product dose omission issue [Unknown]
  - Accidental exposure to product [Unknown]
  - Extra dose administered [Unknown]
  - Headache [Unknown]
  - Nausea [Unknown]
  - Weight increased [Unknown]
  - Hypertension [Recovering/Resolving]
  - Dyspnoea [Unknown]
  - Blood cholesterol increased [Unknown]
  - Blood triglycerides increased [Unknown]
  - Muscle spasms [Unknown]
  - Dizziness [Recovered/Resolved]
  - Drug ineffective [Unknown]
